FAERS Safety Report 24029777 (Version 1)
Quarter: 2024Q2

REPORT INFORMATION
  Report Type: Spontaneous
  Country: KR (occurrence: KR)
  Receive Date: 20240628
  Receipt Date: 20240628
  Transmission Date: 20240716
  Serious: Yes (Death)
  Sender: FDA-Public Use
  Company Number: KR-PFIZER INC-PV202400083857

PATIENT
  Age: 42 Year
  Sex: Female

DRUGS (3)
  1. LORLATINIB [Suspect]
     Active Substance: LORLATINIB
     Indication: Lung neoplasm malignant
     Dosage: 100 MG, 1X/DAY (AFTER BREAKFAST)
     Route: 048
  2. LORLATINIB [Suspect]
     Active Substance: LORLATINIB
     Dosage: 50 MG (2 TABLETS OF 25 MG), 1X/DAY (AFTER BREAKFAST)
     Route: 048
     Dates: start: 2023, end: 2023
  3. LORLATINIB [Suspect]
     Active Substance: LORLATINIB
     Dosage: 75 MG (3 TABLETS OF 25 MG), 1X/DAY (AT THE SAME/SIMILAR TIME EVERY DAY REGARDLESS OF FOOD)
     Route: 048
     Dates: start: 202312

REACTIONS (2)
  - Sepsis [Fatal]
  - Off label use [Unknown]

NARRATIVE: CASE EVENT DATE: 20230101
